FAERS Safety Report 10478725 (Version 1)
Quarter: 2014Q3

REPORT INFORMATION
  Report Type: Report from Study
  Country: CA (occurrence: CA)
  Receive Date: 20140926
  Receipt Date: 20140926
  Transmission Date: 20150326
  Serious: Yes (Other)
  Sender: FDA-Public Use
  Company Number: CA-BRISTOL-MYERS SQUIBB COMPANY-21436399

PATIENT
  Age: 56 Year
  Sex: Female

DRUGS (17)
  1. QUININE [Concomitant]
     Active Substance: QUININE
     Indication: MUSCLE SPASMS
  2. VITAMIN D [Concomitant]
     Active Substance: CHOLECALCIFEROL
  3. SALMON OIL [Concomitant]
     Active Substance: FISH OIL
  4. ACLASTA [Concomitant]
     Active Substance: ZOLEDRONIC ACID
  5. FOLIC ACID. [Concomitant]
     Active Substance: FOLIC ACID
  6. ACTONEL [Concomitant]
     Active Substance: RISEDRONATE SODIUM
  7. FLAXSEED [Concomitant]
     Active Substance: FLAX SEED
  8. ORENCIA [Suspect]
     Active Substance: ABATACEPT
     Indication: RHEUMATOID ARTHRITIS
     Dosage: ORENCIA INFUSION AS SCHEDULED ON 19-SEP-2014.
     Route: 042
     Dates: start: 20090730
  9. OXYCONTIN [Concomitant]
     Active Substance: OXYCODONE HYDROCHLORIDE
  10. PREDNISONE. [Concomitant]
     Active Substance: PREDNISONE
  11. CALCIUM CITRATE [Concomitant]
     Active Substance: CALCIUM CITRATE
  12. COLACE [Concomitant]
     Active Substance: DOCUSATE SODIUM
  13. CRESTOR [Concomitant]
     Active Substance: ROSUVASTATIN CALCIUM
  14. METHOTREXATE [Concomitant]
     Active Substance: METHOTREXATE
  15. HYDROCHLOROTHIAZIDE. [Concomitant]
     Active Substance: HYDROCHLOROTHIAZIDE
  16. MISOPROSTOL. [Concomitant]
     Active Substance: MISOPROSTOL
  17. MULTIVITAMINS [Concomitant]
     Active Substance: VITAMINS

REACTIONS (1)
  - Retinal detachment [Unknown]

NARRATIVE: CASE EVENT DATE: 20140911
